FAERS Safety Report 5196907-0 (Version None)
Quarter: 2007Q1

REPORT INFORMATION
  Report Type: 
  Country: None (occurrence: None)
  Receive Date: 20070103
  Receipt Date: 20061222
  Transmission Date: 20070707
  Serious: Yes (Hospitalization)
  Sender: FDA-Public Use
  Company Number: NL-ROCHE-472100

PATIENT
  Age: 58 Year
  Sex: Male

DRUGS (12)
  1. CAPECITABINE [Suspect]
     Dosage: AS PER PROTOCOL GIVEN FROM DAY ONE TO FOURTEEN OF EACH THREE-WEEK-CYCLE.
     Route: 048
     Dates: start: 20060928
  2. BEVACIZUMAB [Suspect]
     Dosage: AS PER PROTOCOL GIVEN ON DAY ONE OF EACH THREE-WEEK-CYCLE.
     Route: 042
     Dates: start: 20060928
  3. OXALIPLATIN [Suspect]
     Dosage: AS PER PROTOCOL GIVEN ON DAY ONE OF EACH THREE-WEEK-CYCLE.
     Route: 042
     Dates: start: 20060928
  4. ACETAMINOPHEN [Concomitant]
  5. HYDROCHLOROTHIAZIDE [Concomitant]
     Dosage: DRUG NAME REPORTED AS HYDROCHLOROTHIACIEDE.
  6. VALSARTAN [Concomitant]
  7. ATORVASTATIN CALCIUM [Concomitant]
  8. CELECOXIB [Concomitant]
  9. METOCLOPRAMIDE [Concomitant]
  10. GLUCOSE INFUSION [Concomitant]
     Dosage: DRUG NAME REPORTED AS NACL/GLUCOSE INFUSION.
  11. POTASSIUM CHLORIDE [Concomitant]
     Dosage: DRUG NAME REPORTED AS KCL INFUSION.
  12. LORAZEPAM [Concomitant]

REACTIONS (3)
  - HYPOKALAEMIA [None]
  - NAUSEA [None]
  - VOMITING [None]
